FAERS Safety Report 4702218-7 (Version None)
Quarter: 2005Q2

REPORT INFORMATION
  Report Type: 
  Country: None (occurrence: None)
  Receive Date: 20050629
  Receipt Date: 20050620
  Transmission Date: 20051028
  Serious: Yes (Hospitalization)
  Sender: FDA-Public Use
  Company Number: PHBS2005CH08854

PATIENT
  Age: 73 Year
  Sex: Female

DRUGS (2)
  1. BRINERDIN [Suspect]
     Indication: HYPERTENSION
     Dosage: 1 DF, QD
     Route: 048
  2. ANTIINFLAMMATORY/ANTIRHEUMATIC NON-STEROIDS [Concomitant]
     Dosage: OCCASIONALLY
     Dates: start: 20050101

REACTIONS (1)
  - GASTROINTESTINAL ULCER PERFORATION [None]
